FAERS Safety Report 16664449 (Version 3)
Quarter: 2019Q3

REPORT INFORMATION
  Report Type: Spontaneous
  Country: BR (occurrence: BR)
  Receive Date: 20190802
  Receipt Date: 20190904
  Transmission Date: 20191004
  Serious: Yes (Other)
  Sender: FDA-Public Use
  Company Number: BR-ALLERGAN-1931207US

PATIENT
  Sex: Female

DRUGS (15)
  1. ATROPINA 1% [Suspect]
     Active Substance: ATROPINE
     Dosage: UNK, Q6HR
     Route: 047
  2. MYDRIACYL [Suspect]
     Active Substance: TROPICAMIDE
     Indication: PRODUCT USED FOR UNKNOWN INDICATION
     Dosage: UNK
  3. TRIPLENEX [Suspect]
     Active Substance: BIMATOPROST\BRIMONIDINE\TIMOLOL
     Indication: PRODUCT USED FOR UNKNOWN INDICATION
     Route: 047
  4. VIGADEXA [Suspect]
     Active Substance: DEXAMETHASONE SODIUM PHOSPHATE\MOXIFLOXACIN HYDROCHLORIDE
     Dosage: UNK, Q3HR
  5. GLAUCOTRAT [Suspect]
     Active Substance: TIMOLOL MALEATE
     Indication: PRODUCT USED FOR UNKNOWN INDICATION
     Dosage: UNK
  6. GANFORT [Suspect]
     Active Substance: BIMATOPROST\TIMOLOL
     Dosage: UNK
     Route: 047
  7. ATROPINA 1% [Suspect]
     Active Substance: ATROPINE
     Indication: PRODUCT USED FOR UNKNOWN INDICATION
     Dosage: UNK, Q12H
     Route: 047
  8. MALEATO DE TIMOLOL 0,5% [Suspect]
     Active Substance: TIMOLOL MALEATE
     Indication: PRODUCT USED FOR UNKNOWN INDICATION
     Dosage: UNK
     Route: 047
  9. PRED FORT [Suspect]
     Active Substance: PREDNISOLONE ACETATE
     Dosage: UNK, Q12H
  10. DIAMOX                             /00016901/ [Suspect]
     Active Substance: ACETAZOLAMIDE
     Indication: PRODUCT USED FOR UNKNOWN INDICATION
     Dosage: UNK
  11. PRED FORT [Suspect]
     Active Substance: PREDNISOLONE ACETATE
     Indication: PRODUCT USED FOR UNKNOWN INDICATION
     Dosage: UNK, Q4HR
  12. VIGADEXA [Suspect]
     Active Substance: DEXAMETHASONE SODIUM PHOSPHATE\MOXIFLOXACIN HYDROCHLORIDE
     Indication: PRODUCT USED FOR UNKNOWN INDICATION
     Dosage: UNK, Q1HR
  13. GANFORT [Suspect]
     Active Substance: BIMATOPROST\TIMOLOL
     Indication: PRODUCT USED FOR UNKNOWN INDICATION
     Dosage: UNK, QD
     Route: 047
  14. PRED FORT [Suspect]
     Active Substance: PREDNISOLONE ACETATE
     Dosage: UNK, Q6HR
  15. VIGADEXA [Suspect]
     Active Substance: DEXAMETHASONE SODIUM PHOSPHATE\MOXIFLOXACIN HYDROCHLORIDE
     Dosage: UNK UNK, Q1HR

REACTIONS (6)
  - Intraocular pressure test abnormal [Unknown]
  - Corneal dystrophy [Unknown]
  - Visual acuity reduced [Unknown]
  - Off label use [Unknown]
  - Cataract subcapsular [Unknown]
  - Slit-lamp tests abnormal [Unknown]
